FAERS Safety Report 21385382 (Version 2)
Quarter: 2022Q4

REPORT INFORMATION
  Report Type: Spontaneous
  Country: US (occurrence: US)
  Receive Date: 20220928
  Receipt Date: 20221026
  Transmission Date: 20230113
  Serious: No
  Sender: FDA-Public Use
  Company Number: US-BRISTOL-MYERS SQUIBB COMPANY-2022-112916

PATIENT
  Age: 67 Year
  Sex: Female

DRUGS (1)
  1. ORENCIA [Suspect]
     Active Substance: ABATACEPT
     Indication: Rheumatoid arthritis
     Dosage: BATCH NUMBER: ACE0512 EXPIRE DATE: 31-MAR-2024
     Route: 058
     Dates: start: 20220831

REACTIONS (3)
  - Arthralgia [Unknown]
  - Joint swelling [Unknown]
  - Cystitis [Recovered/Resolved]
